FAERS Safety Report 9192292 (Version 1)
Quarter: 2013Q1

REPORT INFORMATION
  Report Type: Spontaneous
  Country: GB (occurrence: GB)
  Receive Date: 20130327
  Receipt Date: 20130327
  Transmission Date: 20140127
  Serious: Yes (Other)
  Sender: FDA-Public Use
  Company Number: GB-ELI_LILLY_AND_COMPANY-GB201303005307

PATIENT
  Age: 34 Year
  Sex: Male

DRUGS (1)
  1. ZYPADHERA [Suspect]
     Indication: PSYCHOTIC DISORDER
     Dosage: 300 MG, 2/M
     Route: 030
     Dates: end: 20130214

REACTIONS (6)
  - Confusional state [Recovered/Resolved]
  - Malaise [Recovered/Resolved]
  - Coordination abnormal [Recovered/Resolved]
  - Dizziness [Recovered/Resolved]
  - Nausea [Recovered/Resolved]
  - Dysarthria [Recovered/Resolved]
